FAERS Safety Report 26165200 (Version 2)
Quarter: 2025Q4

REPORT INFORMATION
  Report Type: Spontaneous
  Country: US (occurrence: US)
  Receive Date: 20251216
  Receipt Date: 20251229
  Transmission Date: 20260118
  Serious: No
  Sender: BIOGEN
  Company Number: US-BIOGEN-2095277

PATIENT
  Sex: Female

DRUGS (1)
  1. VUMERITY [Suspect]
     Active Substance: DIROXIMEL FUMARATE
     Indication: Product used for unknown indication
     Dates: start: 20250423, end: 20250502

REACTIONS (1)
  - Hypersensitivity [Unknown]
